FAERS Safety Report 12771334 (Version 1)
Quarter: 2016Q3

REPORT INFORMATION
  Report Type: Spontaneous
  Country: US (occurrence: US)
  Receive Date: 20160922
  Receipt Date: 20160922
  Transmission Date: 20161109
  Serious: No
  Sender: FDA-Public Use
  Company Number: US-TARO-2016TAR00412

PATIENT
  Age: 10 Year
  Sex: Male
  Weight: 30.39 kg

DRUGS (3)
  1. ALBUTEROL. [Concomitant]
     Active Substance: ALBUTEROL
     Dosage: UNK, AS NEEDED
  2. UNSPECIFIED ACID REFLUX MEDICATION [Concomitant]
     Indication: SEASONAL ALLERGY
     Dosage: UNK, AS NEEDED
     Dates: start: 201604, end: 20160502
  3. LORATADINE SYRUP (LORATADINE ORAL SOLUTION USP) 5MG/5ML [Suspect]
     Active Substance: LORATADINE
     Indication: SEASONAL ALLERGY
     Dosage: 1 DOSAGE UNITS, 1X/DAY
     Route: 048
     Dates: start: 201604, end: 20160503

REACTIONS (6)
  - Throat irritation [Recovered/Resolved]
  - Dizziness [Recovered/Resolved]
  - Incorrect product storage [Unknown]
  - Abdominal discomfort [Recovered/Resolved]
  - Nausea [Recovered/Resolved]
  - Product quality issue [Not Recovered/Not Resolved]

NARRATIVE: CASE EVENT DATE: 201605
